FAERS Safety Report 16168668 (Version 1)
Quarter: 2019Q2

REPORT INFORMATION
  Report Type: Spontaneous
  Country: US (occurrence: US)
  Receive Date: 20190405
  Receipt Date: 20190405
  Transmission Date: 20190711
  Serious: Yes (Other)
  Sender: FDA-Public Use
  Company Number: None

PATIENT
  Age: 26 Year
  Sex: Female
  Weight: 71.1 kg

DRUGS (1)
  1. THERMACARE ULTRA [Suspect]
     Active Substance: CAMPHOR (SYNTHETIC)\CAPSICUM OLEORESIN\MENTHOL\METHYL SALICYLATE
     Indication: TENDONITIS
     Dosage: ?          OTHER STRENGTH:OZ;?
     Route: 061
     Dates: start: 20190403, end: 20190404

REACTIONS (5)
  - Hyperaesthesia [None]
  - Pain of skin [None]
  - Skin burning sensation [None]
  - Application site pain [None]
  - Hypersensitivity [None]

NARRATIVE: CASE EVENT DATE: 20190404
